FAERS Safety Report 15690722 (Version 1)
Quarter: 2018Q4

REPORT INFORMATION
  Report Type: Spontaneous
  Country: US (occurrence: US)
  Receive Date: 20181205
  Receipt Date: 20181205
  Transmission Date: 20190205
  Serious: Yes (Hospitalization, Other)
  Sender: FDA-Public Use
  Company Number: US-THERAVANCE-2017-000049

PATIENT
  Age: 60 Year
  Sex: Male
  Weight: 109 kg

DRUGS (4)
  1. VIBATIV [Suspect]
     Active Substance: TELAVANCIN HYDROCHLORIDE
     Dosage: 1 G, QD
     Route: 042
     Dates: start: 20170118, end: 20170119
  2. VIBATIV [Suspect]
     Active Substance: TELAVANCIN HYDROCHLORIDE
     Dosage: 750 MG, QOD
     Route: 042
     Dates: start: 20170222, end: 20170227
  3. VIBATIV [Suspect]
     Active Substance: TELAVANCIN HYDROCHLORIDE
     Indication: OSTEOMYELITIS
     Dosage: UNK
     Dates: start: 201608
  4. VIBATIV [Suspect]
     Active Substance: TELAVANCIN HYDROCHLORIDE
     Dosage: 750 MG, QD
     Route: 042
     Dates: start: 20170125, end: 20170127

REACTIONS (4)
  - Renal failure [Recovering/Resolving]
  - Rash [Recovered/Resolved]
  - Off label use [Unknown]
  - Dialysis [Unknown]

NARRATIVE: CASE EVENT DATE: 201608
